FAERS Safety Report 9425780 (Version 1)
Quarter: 2013Q3

REPORT INFORMATION
  Report Type: Spontaneous
  Country: GB (occurrence: GB)
  Receive Date: 20130729
  Receipt Date: 20130729
  Transmission Date: 20140515
  Serious: Yes (Life-Threatening, Hospitalization, Other)
  Sender: FDA-Public Use
  Company Number: GB-PFIZER INC-2013217919

PATIENT
  Age: 52 Year
  Sex: Male
  Weight: 76 kg

DRUGS (4)
  1. CHAMPIX [Suspect]
     Indication: SMOKING CESSATION THERAPY
     Dosage: 1 MG FOR 3 DAYS
     Route: 048
     Dates: start: 20090402
  2. CHAMPIX [Suspect]
     Dosage: 2 MG, UNK
     Route: 048
     Dates: end: 20090516
  3. AMITRIPTYLINE [Concomitant]
     Dosage: UNK
  4. LANSOPRAZOLE [Concomitant]
     Dosage: UNK

REACTIONS (8)
  - Panic attack [Recovered/Resolved with Sequelae]
  - Cardiac disorder [Recovered/Resolved with Sequelae]
  - Heart rate increased [Recovered/Resolved with Sequelae]
  - Blood pressure increased [Recovered/Resolved with Sequelae]
  - Blood cholesterol increased [Recovered/Resolved with Sequelae]
  - Depression [Recovered/Resolved with Sequelae]
  - Insomnia [Recovered/Resolved with Sequelae]
  - Chest pain [Unknown]
